FAERS Safety Report 12408367 (Version 1)
Quarter: 2016Q2

REPORT INFORMATION
  Report Type: Spontaneous
  Country: US (occurrence: US)
  Receive Date: 20160526
  Receipt Date: 20160526
  Transmission Date: 20160815
  Serious: No
  Sender: FDA-Public Use
  Company Number: US-PFIZER INC-2016184851

PATIENT
  Age: 53 Year
  Sex: Female
  Weight: 117 kg

DRUGS (7)
  1. CELECOXIB. [Suspect]
     Active Substance: CELECOXIB
     Indication: SPINAL OSTEOARTHRITIS
  2. TYLENOL [Concomitant]
     Active Substance: ACETAMINOPHEN
     Indication: BACK PAIN
     Dosage: 650MG (ONCE OR TWICE DAILY)
     Dates: start: 201601
  3. CELECOXIB. [Suspect]
     Active Substance: CELECOXIB
     Indication: ARTHRITIS
     Dosage: 200 MG, 2X/DAY
     Dates: start: 2016
  4. EQUATE IBUPROFEN [Suspect]
     Active Substance: IBUPROFEN
     Indication: PAIN
     Dosage: 200MG TABLET (ONE TO THREE TIMES DAILY)
     Dates: start: 201601
  5. FLEXERIL [Concomitant]
     Active Substance: CYCLOBENZAPRINE HYDROCHLORIDE
     Dosage: UNK, DAILY
     Dates: start: 201602
  6. CELECOXIB. [Suspect]
     Active Substance: CELECOXIB
     Indication: INTERVERTEBRAL DISC ANNULAR TEAR
     Dosage: 200 MG, 1X/DAY
     Dates: start: 201601
  7. FLEXERIL [Concomitant]
     Active Substance: CYCLOBENZAPRINE HYDROCHLORIDE
     Indication: MUSCLE RELAXANT THERAPY
     Dosage: UNK, WEEKLY

REACTIONS (5)
  - Intentional product misuse [Unknown]
  - Expired product administered [Unknown]
  - Back pain [Not Recovered/Not Resolved]
  - Drug ineffective [Not Recovered/Not Resolved]
  - Dysstasia [Not Recovered/Not Resolved]

NARRATIVE: CASE EVENT DATE: 201601
